FAERS Safety Report 9655578 (Version 3)
Quarter: 2013Q4

REPORT INFORMATION
  Report Type: Report from Study
  Country: TH (occurrence: TH)
  Receive Date: 20131029
  Receipt Date: 20131120
  Transmission Date: 20140711
  Serious: Yes (Death)
  Sender: FDA-Public Use
  Company Number: TH-ROCHE-1296342

PATIENT
  Age: 73 Year
  Sex: Male

DRUGS (3)
  1. ALTEPLASE [Suspect]
     Indication: PERIPHERAL ISCHAEMIA
     Dosage: TOTAL DOSE WAS 34.7 MG
     Route: 041
  2. ALTEPLASE [Suspect]
     Indication: EMBOLISM ARTERIAL
  3. HEPARIN [Suspect]
     Indication: THROMBOSIS PROPHYLAXIS
     Route: 065

REACTIONS (4)
  - Sepsis [Fatal]
  - Ischaemic stroke [Fatal]
  - Lacunar infarction [Fatal]
  - Stupor [Fatal]
